FAERS Safety Report 6693871-X (Version None)
Quarter: 2010Q2

REPORT INFORMATION
  Report Type: 
  Country: None (occurrence: None)
  Receive Date: 20100421
  Receipt Date: 20100218
  Transmission Date: 20101027
  Serious: Yes (Other)
  Sender: FDA-Public Use
  Company Number: 20097736

PATIENT
  Sex: Male

DRUGS (1)
  1. LIORESAL [Suspect]
     Indication: MUSCLE SPASTICITY
     Dosage: INTRATHECAL
     Route: 037

REACTIONS (5)
  - DIPLEGIA [None]
  - LUMBAR SPINAL STENOSIS [None]
  - MUSCLE SPASTICITY [None]
  - POSTURE ABNORMAL [None]
  - SPINAL OSTEOARTHRITIS [None]
